FAERS Safety Report 6169514-0 (Version None)
Quarter: 2009Q2

REPORT INFORMATION
  Report Type: 
  Country: None (occurrence: None)
  Receive Date: 20090428
  Receipt Date: 20090416
  Transmission Date: 20091009
  Serious: Yes (Other)
  Sender: FDA-Public Use
  Company Number: AU-BAXTER-2009BH006156

PATIENT
  Sex: Female

DRUGS (1)
  1. HOLOXAN BAXTER [Suspect]
     Indication: DRUG USE FOR UNKNOWN INDICATION
     Route: 065

REACTIONS (4)
  - GAIT DISTURBANCE [None]
  - INCORRECT DRUG ADMINISTRATION RATE [None]
  - NAUSEA [None]
  - NEUROTOXICITY [None]
